FAERS Safety Report 6085648-3 (Version None)
Quarter: 2009Q1

REPORT INFORMATION
  Report Type: 
  Country: None (occurrence: None)
  Receive Date: 20090220
  Receipt Date: 20090210
  Transmission Date: 20090719
  Serious: Yes (Hospitalization, Other)
  Sender: FDA-Public Use
  Company Number: FR-ABBOTT-09P-056-0502695-00

PATIENT
  Sex: Female

DRUGS (7)
  1. DEPAKENE [Suspect]
     Indication: DRUG USE FOR UNKNOWN INDICATION
     Route: 048
     Dates: end: 20081108
  2. DEPAKENE [Suspect]
     Route: 048
     Dates: start: 20081109, end: 20081121
  3. DI-HYDAN [Suspect]
     Indication: DRUG USE FOR UNKNOWN INDICATION
     Dosage: 1.5 TABLET DAILY
     Route: 048
     Dates: end: 20081108
  4. DI-HYDAN [Suspect]
     Dosage: 1.5 TABLET TID
     Route: 048
     Dates: start: 20081109, end: 20081121
  5. TRILEPTAL [Concomitant]
     Indication: DRUG USE FOR UNKNOWN INDICATION
     Route: 048
     Dates: end: 20081121
  6. RIVOTRIL [Concomitant]
     Indication: DRUG USE FOR UNKNOWN INDICATION
     Route: 048
     Dates: end: 20081121
  7. INIPOMP [Concomitant]
     Indication: DRUG USE FOR UNKNOWN INDICATION
     Route: 048
     Dates: end: 20081121

REACTIONS (5)
  - CHOLESTASIS [None]
  - CONFUSIONAL STATE [None]
  - FALL [None]
  - HEPATITIS CHOLESTATIC [None]
  - JAUNDICE [None]
